FAERS Safety Report 14490936 (Version 2)
Quarter: 2018Q1

REPORT INFORMATION
  Report Type: Spontaneous
  Country: US (occurrence: US)
  Receive Date: 20180206
  Receipt Date: 20180227
  Transmission Date: 20180509
  Serious: No
  Sender: FDA-Public Use
  Company Number: US-PFIZER INC-2018049041

PATIENT
  Age: 57 Year
  Sex: Female
  Weight: 122 kg

DRUGS (3)
  1. GABAPENTIN. [Suspect]
     Active Substance: GABAPENTIN
     Indication: NERVE INJURY
     Dosage: 300 MG, 1X/DAY
     Route: 048
     Dates: start: 201801
  2. GABAPENTIN. [Suspect]
     Active Substance: GABAPENTIN
     Dosage: 300 MG, 2X/DAY
     Route: 048
  3. GABAPENTIN. [Suspect]
     Active Substance: GABAPENTIN
     Dosage: 300 MG, 3X/DAY
     Route: 048

REACTIONS (7)
  - Somnolence [Recovering/Resolving]
  - Vision blurred [Recovering/Resolving]
  - Product use in unapproved indication [Unknown]
  - Feeling abnormal [Recovering/Resolving]
  - Pain [Recovering/Resolving]
  - Feeling drunk [Recovering/Resolving]
  - Cognitive disorder [Recovering/Resolving]

NARRATIVE: CASE EVENT DATE: 201801
